FAERS Safety Report 26094103 (Version 1)
Quarter: 2025Q4

REPORT INFORMATION
  Report Type: Report from Study
  Country: US (occurrence: US)
  Receive Date: 20251126
  Receipt Date: 20251126
  Transmission Date: 20260117
  Serious: Yes (Other)
  Sender: ALEXION PHARMACEUTICALS
  Company Number: US-AstraZeneca-CH-00999054A

PATIENT
  Sex: Male

DRUGS (1)
  1. SOLIRIS [Suspect]
     Active Substance: ECULIZUMAB
     Indication: Atypical haemolytic uraemic syndrome
     Dosage: UNK
     Route: 065

REACTIONS (8)
  - Cholestasis [Unknown]
  - Renal impairment [Unknown]
  - Sepsis [Unknown]
  - Nephrosclerosis [Unknown]
  - Drug ineffective [Unknown]
  - Renal disorder [Unknown]
  - Illness [Unknown]
  - Hyperproteinaemia [Unknown]
